FAERS Safety Report 9358821 (Version 3)
Quarter: 2014Q1

REPORT INFORMATION
  Report Type: Spontaneous
  Country: US (occurrence: US)
  Receive Date: 20130620
  Receipt Date: 20140311
  Transmission Date: 20141002
  Serious: Yes (Hospitalization)
  Sender: FDA-Public Use
  Company Number: US-B.I. PHARMACEUTICALS,INC./RIDGEFIELD-2013-BI-17212BP

PATIENT
  Sex: Female
  Weight: 86.18 kg

DRUGS (11)
  1. PRADAXA [Suspect]
     Indication: ATRIAL FIBRILLATION
     Dosage: 300 MG
     Route: 048
     Dates: start: 20121028, end: 20121103
  2. ASPIRIN [Concomitant]
     Indication: SUPRAVENTRICULAR TACHYCARDIA
     Route: 065
  3. AMIODARONE [Concomitant]
     Route: 065
  4. COREG [Concomitant]
     Route: 065
  5. HYDROCHLOROTHIAZIDE [Concomitant]
     Route: 065
  6. POTASSIUM CL ER [Concomitant]
     Route: 065
  7. LASIX [Concomitant]
     Route: 065
  8. PREVACID [Concomitant]
     Route: 065
  9. OXYGEN [Concomitant]
     Indication: CHRONIC RESPIRATORY FAILURE
     Route: 065
  10. TEMAZEPAM [Concomitant]
     Route: 065
  11. KLOR-CON M20 [Concomitant]
     Route: 065

REACTIONS (3)
  - Upper gastrointestinal haemorrhage [Recovered/Resolved]
  - Haemorrhagic anaemia [Unknown]
  - Coagulopathy [Unknown]
